FAERS Safety Report 12312571 (Version 2)
Quarter: 2016Q2

REPORT INFORMATION
  Report Type: Report from Study
  Country: US (occurrence: US)
  Receive Date: 20160428
  Receipt Date: 20160520
  Transmission Date: 20160815
  Serious: Yes (Death, Hospitalization, Other)
  Sender: FDA-Public Use
  Company Number: US-AMGEN-USASL2016052640

PATIENT
  Age: 95 Year
  Sex: Female
  Weight: 45.1 kg

DRUGS (3)
  1. METOPROLOL. [Concomitant]
     Active Substance: METOPROLOL
     Indication: CHRONIC LEFT VENTRICULAR FAILURE
     Dosage: 12.5 UNK, BID
  2. PROCRIT [Suspect]
     Active Substance: ERYTHROPOIETIN
     Indication: NEPHROGENIC ANAEMIA
     Dosage: 40000 UNIT, WEEKLY
     Route: 058
  3. METOPROLOL. [Concomitant]
     Active Substance: METOPROLOL
     Indication: ISCHAEMIC CARDIOMYOPATHY

REACTIONS (22)
  - Aspiration [Unknown]
  - Acute respiratory failure [Unknown]
  - Fluid overload [Unknown]
  - Cachexia [Unknown]
  - Atrial fibrillation [Unknown]
  - Dyspnoea [Unknown]
  - Infection [Unknown]
  - Hospitalisation [Unknown]
  - Decubitus ulcer [Unknown]
  - Acute kidney injury [Unknown]
  - Bradycardia [Unknown]
  - Death [Fatal]
  - Hypothyroidism [Unknown]
  - Pain [Unknown]
  - Ecchymosis [Unknown]
  - Mental status changes [Unknown]
  - Septic shock [Unknown]
  - Incontinence [Unknown]
  - Hypoxia [Unknown]
  - Cellulitis [Unknown]
  - Haemothorax [Unknown]
  - Hospice care [Unknown]

NARRATIVE: CASE EVENT DATE: 20160415
